FAERS Safety Report 7092000-0 (Version None)
Quarter: 2010Q4

REPORT INFORMATION
  Report Type: 
  Country: None (occurrence: None)
  Receive Date: 20101109
  Receipt Date: 20101028
  Transmission Date: 20110411
  Serious: Yes (Other)
  Sender: FDA-Public Use
  Company Number: DE-AMGEN-DEUSP2010001720

PATIENT

DRUGS (1)
  1. PROLIA [Suspect]
     Dosage: UNK

REACTIONS (1)
  - GASTROINTESTINAL HAEMORRHAGE [None]
